FAERS Safety Report 8249865-6 (Version None)
Quarter: 2012Q2

REPORT INFORMATION
  Report Type: 
  Country: None (occurrence: None)
  Receive Date: 20120402
  Receipt Date: 20120329
  Transmission Date: 20120825
  Serious: No
  Sender: FDA-Public Use
  Company Number: PHEH2012US006367

PATIENT
  Sex: Female

DRUGS (6)
  1. GILENYA [Suspect]
     Indication: MULTIPLE SCLEROSIS
     Dosage: 0.5 MG, QD
     Route: 048
     Dates: start: 20120312
  2. TRAMADOL HCL [Concomitant]
     Route: 048
  3. ORTHO-NOVUM [Concomitant]
     Route: 048
  4. PREDNISONE TAB [Concomitant]
     Indication: MULTIPLE SCLEROSIS RELAPSE
  5. XANAX [Concomitant]
     Route: 048
  6. WELLBUTRIN XL [Concomitant]
     Dosage: 300 MG, DAILY
     Route: 048

REACTIONS (2)
  - PAIN [None]
  - BLISTER [None]
